FAERS Safety Report 18215017 (Version 2)
Quarter: 2020Q4

REPORT INFORMATION
  Report Type: Spontaneous
  Country: US (occurrence: US)
  Receive Date: 20200831
  Receipt Date: 20201023
  Transmission Date: 20210113
  Serious: No
  Sender: FDA-Public Use
  Company Number: US-ABBVIE-20K-163-3533172-00

PATIENT
  Sex: Female

DRUGS (2)
  1. ORTHO MICRONOR [Concomitant]
     Active Substance: NORETHINDRONE
     Indication: ORAL CONTRACEPTION
  2. ELAGOLIX [Suspect]
     Active Substance: ELAGOLIX
     Indication: PELVIC PAIN
     Route: 048
     Dates: start: 201909, end: 202008

REACTIONS (1)
  - Maternal exposure during pregnancy [Not Recovered/Not Resolved]
